FAERS Safety Report 4721615-7 (Version None)
Quarter: 2005Q3

REPORT INFORMATION
  Report Type: 
  Country: None (occurrence: None)
  Receive Date: 20050721
  Receipt Date: 20050104
  Transmission Date: 20060218
  Serious: No
  Sender: FDA-Public Use
  Company Number: US-BRISTOL-MYERS SQUIBB COMPANY-12812269

PATIENT
  Age: 58 Year
  Sex: Female
  Weight: 73 kg

DRUGS (6)
  1. COUMADIN [Suspect]
     Indication: PROTEIN S DEFICIENCY
     Dosage: TEMP STOPPED DURING ADMISSION, RESTARTED @ 4MG/D, INCREA.(DOSE UNK), FURTHER INCREASED TO 5 MG/D
     Route: 048
  2. LOVENOX [Suspect]
     Dosage: BEGAN DURING ADMISSION - UNK DOSE, STOPPED, RESTARTED AT 80 MG TWICE DAILY
     Dates: start: 20041201
  3. NEXIUM [Concomitant]
  4. ATENOLOL [Concomitant]
  5. LASIX [Concomitant]
  6. VALIUM [Concomitant]
     Dosage: 2.5MG IN AM, 2.5MG IN PM AS NEEDED

REACTIONS (3)
  - DRUG INEFFECTIVE [None]
  - INTERNATIONAL NORMALISED RATIO DECREASED [None]
  - MUSCLE SPASMS [None]
